FAERS Safety Report 21259811 (Version 6)
Quarter: 2022Q4

REPORT INFORMATION
  Report Type: Other
  Country: CA (occurrence: None)
  Receive Date: 20220826
  Receipt Date: 20221006
  Transmission Date: 20230113
  Serious: Yes (Other)
  Sender: FDA-Public Use
  Company Number: CA-ROCHE-3164181

PATIENT
  Age: 58 Year
  Sex: Female

DRUGS (7)
  1. OCREVUS [Suspect]
     Active Substance: OCRELIZUMAB
     Indication: Relapsing-remitting multiple sclerosis
     Dosage: 300 MG AT DAY 0 AND 14, THEN 600 MG EVERY 6 MONTHS
     Route: 042
     Dates: start: 20180607
  2. OCREVUS [Suspect]
     Active Substance: OCRELIZUMAB
     Dosage: DAY 0, 14 THEN 600 MG Q6M, 300 MG AT DAY 0 AND 14, THEN 600 MG EVERY 6 MONTH
     Route: 042
  3. RITALIN [Suspect]
     Active Substance: METHYLPHENIDATE HYDROCHLORIDE
     Indication: Product used for unknown indication
     Route: 065
  4. PFIZER-BIONTECH COVID-19 VACCINE [Concomitant]
     Active Substance: TOZINAMERAN
  5. KEFZOL [Concomitant]
     Active Substance: CEFAZOLIN SODIUM
  6. CIPROFLOXACIN [Concomitant]
     Active Substance: CIPROFLOXACIN
  7. MACROBID [Concomitant]
     Active Substance: NITROFURANTOIN\NITROFURANTOIN MONOHYDRATE

REACTIONS (13)
  - Herpes zoster [Not Recovered/Not Resolved]
  - Lymphadenopathy [Recovered/Resolved]
  - Urinary tract infection [Not Recovered/Not Resolved]
  - COVID-19 [Unknown]
  - Femoroacetabular impingement [Not Recovered/Not Resolved]
  - Spondylitis [Not Recovered/Not Resolved]
  - Osteoarthritis [Not Recovered/Not Resolved]
  - Nasopharyngitis [Recovering/Resolving]
  - Cystitis [Recovered/Resolved]
  - Stress [Recovering/Resolving]
  - Mood swings [Recovering/Resolving]
  - Headache [Recovering/Resolving]
  - Anal incontinence [Unknown]

NARRATIVE: CASE EVENT DATE: 20220813
